FAERS Safety Report 8207668-2 (Version None)
Quarter: 2012Q1

REPORT INFORMATION
  Report Type: 
  Country: None (occurrence: None)
  Receive Date: 20120314
  Receipt Date: 20120306
  Transmission Date: 20120608
  Serious: No
  Sender: FDA-Public Use
  Company Number: US-PFIZER INC-2012034770

PATIENT
  Sex: Female

DRUGS (3)
  1. LO/OVRAL-28 [Suspect]
     Indication: OFF LABEL USE
     Dosage: UNK
  2. LO/OVRAL-28 [Suspect]
     Indication: MENORRHAGIA
  3. SYNTHROID [Concomitant]

REACTIONS (4)
  - METRORRHAGIA [None]
  - HEADACHE [None]
  - PRODUCT QUALITY ISSUE [None]
  - DRUG INEFFECTIVE FOR UNAPPROVED INDICATION [None]
